FAERS Safety Report 8732568 (Version 3)
Quarter: 2013Q3

REPORT INFORMATION
  Report Type: Spontaneous
  Country: US (occurrence: None)
  Receive Date: 20120731
  Receipt Date: 20130815
  Transmission Date: 20140515
  Serious: Yes (Other)
  Sender: FDA-Public Use
  Company Number: ADR-2012-00748

PATIENT
  Sex: Male

DRUGS (3)
  1. BACLOFEN [Suspect]
     Indication: MUSCLE SPASTICITY
  2. BACLOFEN [Suspect]
     Indication: HEAD INJURY
  3. BACLOFEN [Suspect]
     Indication: BRAIN INJURY

REACTIONS (13)
  - Respiratory depression [None]
  - Sedation [None]
  - Confusional state [None]
  - Dysphagia [None]
  - Cough [None]
  - Urinary tract infection [None]
  - Pneumonia [None]
  - Oesophageal disorder [None]
  - Cognitive disorder [None]
  - Increased bronchial secretion [None]
  - Drug hypersensitivity [None]
  - Incorrect dose administered [None]
  - Dyspnoea [None]
